FAERS Safety Report 5056404-X (Version None)
Quarter: 2006Q3

REPORT INFORMATION
  Report Type: 
  Country: None (occurrence: None)
  Receive Date: 20060717
  Receipt Date: 20060712
  Transmission Date: 20061208
  Serious: Yes (Hospitalization)
  Sender: FDA-Public Use
  Company Number: THQ2006A00523

PATIENT
  Age: 69 Year
  Sex: Female

DRUGS (2)
  1. PIOGLITAZONE HCL [Suspect]
     Dosage: SEE IMAGE
     Route: 048
  2. GLYBURIDE [Concomitant]

REACTIONS (3)
  - BLOOD UREA INCREASED [None]
  - CARDIAC FAILURE [None]
  - OEDEMA [None]
